FAERS Safety Report 5858051-6 (Version None)
Quarter: 2008Q3

REPORT INFORMATION
  Report Type: 
  Country: None (occurrence: None)
  Receive Date: 20080826
  Receipt Date: 20080820
  Transmission Date: 20090109
  Serious: Yes (Hospitalization, Disabling)
  Sender: FDA-Public Use
  Company Number: US-MERCK-0808USA04058

PATIENT
  Age: 70 Year
  Sex: Female

DRUGS (2)
  1. FOSAMAX [Suspect]
     Route: 048
  2. CALCIUM (UNSPECIFIED) [Concomitant]
     Route: 065

REACTIONS (2)
  - FEMUR FRACTURE [None]
  - GAIT DISTURBANCE [None]
